FAERS Safety Report 16597770 (Version 1)
Quarter: 2019Q3

REPORT INFORMATION
  Report Type: Report from Study
  Country: IT (occurrence: IT)
  Receive Date: 20190719
  Receipt Date: 20190719
  Transmission Date: 20191004
  Serious: Yes (Other)
  Sender: FDA-Public Use
  Company Number: IT-MYLANLABS-2019M1067266

PATIENT
  Age: 17 Year
  Sex: Female

DRUGS (5)
  1. KETAMINE [Concomitant]
     Active Substance: KETAMINE
     Indication: PAIN
     Dosage: 2 MG/ML WITH A LOCK-OUT TIME OF 20 MINUTES
     Route: 040
  2. MORPHINE [Interacting]
     Active Substance: MORPHINE
     Indication: POSTOPERATIVE ANALGESIA
     Dosage: 2 MG/ML WITH A LOCK-OUT TIME OF 20 MINUTES
     Route: 040
  3. BACLOFEN. [Suspect]
     Active Substance: BACLOFEN
     Indication: SCOLIOSIS
     Route: 037
  4. SUFENTANIL [Interacting]
     Active Substance: SUFENTANIL
     Indication: PAIN
     Route: 042
  5. KETAMINE [Concomitant]
     Active Substance: KETAMINE
     Indication: POSTOPERATIVE ANALGESIA
     Dosage: UNK
     Route: 042

REACTIONS (3)
  - Sedation complication [Unknown]
  - Respiratory depression [Unknown]
  - Drug interaction [Unknown]
